FAERS Safety Report 9638942 (Version 1)
Quarter: 2013Q4

REPORT INFORMATION
  Report Type: Spontaneous
  Country: US (occurrence: US)
  Receive Date: 20131022
  Receipt Date: 20131022
  Transmission Date: 20140711
  Serious: No
  Sender: FDA-Public Use
  Company Number: US-TARO-2013P1019111

PATIENT
  Sex: 0

DRUGS (2)
  1. CLOTRIMAZOLE [Suspect]
     Route: 061
  2. UNKNOWN ANTIBIOTIC [Suspect]

REACTIONS (2)
  - Fungal infection [Not Recovered/Not Resolved]
  - Off label use [Unknown]
